FAERS Safety Report 8077463-6 (Version None)
Quarter: 2012Q1

REPORT INFORMATION
  Report Type: 
  Country: None (occurrence: None)
  Receive Date: 20120127
  Receipt Date: 20100729
  Transmission Date: 20120608
  Serious: No
  Sender: FDA-Public Use
  Company Number: US-ABBOTT-11P-163-0877692-00

PATIENT
  Age: 31 Year
  Sex: Female

DRUGS (1)
  1. HUMIRA [Suspect]
     Indication: PSORIASIS
     Dosage: ON SUNDAY
     Dates: start: 20100725

REACTIONS (4)
  - NAUSEA [None]
  - DEVICE MALFUNCTION [None]
  - DISORIENTATION [None]
  - DIZZINESS [None]
